FAERS Safety Report 16631333 (Version 2)
Quarter: 2019Q3

REPORT INFORMATION
  Report Type: Report from Study
  Country: US (occurrence: US)
  Receive Date: 20190725
  Receipt Date: 20190816
  Transmission Date: 20191004
  Serious: Yes (Other)
  Sender: FDA-Public Use
  Company Number: US-SHIRE-US201922515

PATIENT
  Age: 59 Year
  Sex: Female

DRUGS (1)
  1. TEDUGLUTIDE [Suspect]
     Active Substance: TEDUGLUTIDE
     Indication: SHORT-BOWEL SYNDROME
     Dosage: 0.48 MILLILITER, 1X/DAY:QD
     Route: 058
     Dates: start: 20190701

REACTIONS (7)
  - Product dose omission [Recovered/Resolved]
  - Peripheral swelling [Unknown]
  - Poor venous access [Unknown]
  - Wound infection [Unknown]
  - Dehydration [Unknown]
  - Blister [Unknown]
  - Rash [Unknown]

NARRATIVE: CASE EVENT DATE: 20190710
